FAERS Safety Report 5382165-0 (Version None)
Quarter: 2007Q3

REPORT INFORMATION
  Report Type: 
  Country: None (occurrence: None)
  Receive Date: 20070709
  Receipt Date: 20070627
  Transmission Date: 20080115
  Serious: Yes (Other)
  Sender: FDA-Public Use
  Company Number: PT-PFIZER INC-2007052718

PATIENT
  Sex: Male

DRUGS (3)
  1. SUTENT [Suspect]
     Route: 048
  2. ESOMEPRAZOLE MAGNESIUM [Concomitant]
  3. GRANISETRON  HCL [Concomitant]
     Indication: NAUSEA
     Route: 048

REACTIONS (4)
  - INFLAMMATION [None]
  - PAIN [None]
  - SCAB [None]
  - SKIN EXFOLIATION [None]
